FAERS Safety Report 13170589 (Version 1)
Quarter: 2017Q1

REPORT INFORMATION
  Report Type: Spontaneous
  Country: US (occurrence: US)
  Receive Date: 20170131
  Receipt Date: 20170131
  Transmission Date: 20170428
  Serious: No
  Sender: FDA-Public Use
  Company Number: US-ABBVIE-16K-163-1700330-00

PATIENT
  Sex: Female

DRUGS (4)
  1. HUMIRA [Suspect]
     Active Substance: ADALIMUMAB
     Dosage: FOUR WEEKS AFTER 160 MG
     Route: 058
     Dates: start: 2014, end: 201606
  2. HUMIRA [Suspect]
     Active Substance: ADALIMUMAB
     Dosage: TWO WEKS AFTER 160 MG
     Route: 058
     Dates: start: 2014, end: 2014
  3. HUMIRA [Suspect]
     Active Substance: ADALIMUMAB
     Indication: CROHN^S DISEASE
     Dosage: INDUCTION DOSE
     Route: 058
     Dates: start: 2014, end: 2014
  4. ENTYVIO [Suspect]
     Active Substance: VEDOLIZUMAB
     Indication: CROHN^S DISEASE
     Route: 065
     Dates: start: 2016

REACTIONS (3)
  - Crohn^s disease [Not Recovered/Not Resolved]
  - Drug effect incomplete [Not Recovered/Not Resolved]
  - Urticaria [Unknown]

NARRATIVE: CASE EVENT DATE: 2014
